FAERS Safety Report 16704266 (Version 1)
Quarter: 2019Q3

REPORT INFORMATION
  Report Type: Spontaneous
  Country: US (occurrence: US)
  Receive Date: 20190814
  Receipt Date: 20190814
  Transmission Date: 20191004
  Serious: Yes (Hospitalization, Other)
  Sender: FDA-Public Use
  Company Number: US-FRESENIUS KABI-FK201908978

PATIENT
  Age: 68 Year
  Sex: Male

DRUGS (7)
  1. METHYLPREDNISOLONE (MANUFACTURER UNKNOWN) [Suspect]
     Active Substance: METHYLPREDNISOLONE
     Indication: AUTOIMMUNE COLITIS
     Route: 042
  2. TRIAMCINOLONE [Suspect]
     Active Substance: TRIAMCINOLONE
     Indication: UVEITIS
     Dosage: UNKNOWN
     Route: 061
  3. TRIAMCINOLONE [Suspect]
     Active Substance: TRIAMCINOLONE
     Route: 050
  4. NIVOLUMAB [Suspect]
     Active Substance: NIVOLUMAB
     Route: 065
  5. NIVOLUMAB [Suspect]
     Active Substance: NIVOLUMAB
     Indication: METASTATIC MALIGNANT MELANOMA
     Route: 065
  6. INFLIXIMAB [Suspect]
     Active Substance: INFLIXIMAB
     Indication: AUTOIMMUNE COLITIS
     Route: 042
  7. IPILIMUMAB [Suspect]
     Active Substance: IPILIMUMAB
     Indication: METASTATIC MALIGNANT MELANOMA
     Route: 065

REACTIONS (3)
  - Endophthalmitis [Not Recovered/Not Resolved]
  - Uveitis [Unknown]
  - Listeriosis [Not Recovered/Not Resolved]
